FAERS Safety Report 9595354 (Version 2)
Quarter: 2014Q2

REPORT INFORMATION
  Report Type: Spontaneous
  Country: US (occurrence: US)
  Receive Date: 20131004
  Receipt Date: 20140429
  Transmission Date: 20141212
  Serious: Yes (Death)
  Sender: FDA-Public Use
  Company Number: US-PFIZER INC-2013282607

PATIENT
  Age: 39 Year
  Sex: Male

DRUGS (1)
  1. INLYTA [Suspect]
     Indication: RENAL CANCER
     Dosage: 6 MG, 2X/DAY
     Route: 048
     Dates: start: 20120705

REACTIONS (5)
  - Death [Fatal]
  - Disease progression [Unknown]
  - Renal cancer [Unknown]
  - Diarrhoea [Unknown]
  - Headache [Unknown]
